FAERS Safety Report 6558092-X (Version None)
Quarter: 2010Q1

REPORT INFORMATION
  Report Type: 
  Country: None (occurrence: None)
  Receive Date: 20100129
  Receipt Date: 20100121
  Transmission Date: 20100710
  Serious: Yes (Hospitalization)
  Sender: FDA-Public Use
  Company Number: A0805030B

PATIENT
  Sex: Female
  Weight: 39.9 kg

DRUGS (1)
  1. PAZOPANIB [Suspect]
     Indication: THYROID CANCER
     Dosage: 800MG PER DAY
     Route: 048
     Dates: start: 20090424

REACTIONS (7)
  - ASTHENIA [None]
  - CHEST DISCOMFORT [None]
  - DIZZINESS [None]
  - DYSPNOEA [None]
  - FATIGUE [None]
  - HERPES SIMPLEX [None]
  - RASH [None]
